FAERS Safety Report 23474505 (Version 1)
Quarter: 2024Q1

REPORT INFORMATION
  Report Type: Report from Study
  Country: US (occurrence: US)
  Receive Date: 20240204
  Receipt Date: 20240204
  Transmission Date: 20240410
  Serious: Yes (Other)
  Sender: FDA-Public Use
  Company Number: US-EXELIXIS-CABO-23062377

PATIENT
  Age: 63 Year
  Sex: Male

DRUGS (17)
  1. CABOMETYX [Suspect]
     Active Substance: CABOZANTINIB S-MALATE
     Indication: Clear cell renal cell carcinoma
     Dosage: 40 MG, QD
     Route: 048
     Dates: start: 202301
  2. OPDIVO [Suspect]
     Active Substance: NIVOLUMAB
     Indication: Clear cell renal cell carcinoma
     Dosage: 240 MG, Q2WEEKS
     Dates: start: 20230228
  3. TYLENOL [Concomitant]
     Active Substance: ACETAMINOPHEN
     Indication: Pain
  4. VITAMIN C [Concomitant]
     Active Substance: ASCORBIC ACID
  5. LIPITOR [Concomitant]
     Active Substance: ATORVASTATIN CALCIUM
  6. BACITRACIN ZINC [Concomitant]
     Active Substance: BACITRACIN ZINC
  7. VITAMIN D3 [Concomitant]
     Active Substance: CHOLECALCIFEROL
  8. VITAMIN B12 [Concomitant]
     Active Substance: CYANOCOBALAMIN
  9. PEPCID [Concomitant]
     Active Substance: FAMOTIDINE
  10. NEURONTIN [Concomitant]
     Active Substance: GABAPENTIN
  11. NORCO [Concomitant]
     Active Substance: ACETAMINOPHEN\HYDROCODONE BITARTRATE
     Indication: Pain
  12. SYNTHROID [Concomitant]
     Active Substance: LEVOTHYROXINE SODIUM
  13. VITAMINS [Concomitant]
     Active Substance: VITAMINS
  14. ZOFRAN [Concomitant]
     Active Substance: ONDANSETRON HYDROCHLORIDE
     Indication: Prophylaxis of nausea and vomiting
  15. PROTONIX [Concomitant]
     Active Substance: PANTOPRAZOLE SODIUM
  16. BIOTENE NOS [Concomitant]
     Active Substance: CETYLPYRIDINIUM CHLORIDE OR SODIUM FLUORIDE OR SODIUM MONOFLUOROPHOSPHATE OR GLUCOSE OXIDASE\LACTOFE
  17. DESYREL [Concomitant]
     Active Substance: TRAZODONE HYDROCHLORIDE
     Indication: Sleep disorder

REACTIONS (10)
  - Pulmonary embolism [Recovering/Resolving]
  - Blister [Unknown]
  - Skin ulcer [Recovered/Resolved]
  - Stomatitis [Recovered/Resolved]
  - Blood creatinine increased [Not Recovered/Not Resolved]
  - Fatigue [Not Recovered/Not Resolved]
  - Dry mouth [Recovered/Resolved]
  - Hepatic enzyme increased [Not Recovered/Not Resolved]
  - Weight decreased [Not Recovered/Not Resolved]
  - Decreased appetite [Recovering/Resolving]

NARRATIVE: CASE EVENT DATE: 20230101
